FAERS Safety Report 23198334 (Version 1)
Quarter: 2023Q4

REPORT INFORMATION
  Report Type: Spontaneous
  Country: CN (occurrence: CN)
  Receive Date: 20231117
  Receipt Date: 20231117
  Transmission Date: 20240110
  Serious: Yes (Other)
  Sender: FDA-Public Use
  Company Number: CN-SANDOZ-SDZ2023CN054950

PATIENT
  Age: 53 Year
  Sex: Female

DRUGS (29)
  1. CYCLOPHOSPHAMIDE [Suspect]
     Active Substance: CYCLOPHOSPHAMIDE
     Indication: Breast cancer female
     Dosage: 0.9 G
     Route: 065
  2. CYCLOPHOSPHAMIDE [Suspect]
     Active Substance: CYCLOPHOSPHAMIDE
     Dosage: 1 G (4 CYCLES)
     Route: 065
  3. DOCETAXEL [Suspect]
     Active Substance: DOCETAXEL\DOCETAXEL ANHYDROUS
     Indication: Breast cancer female
     Dosage: 140 MG
     Route: 065
  4. DOCETAXEL [Suspect]
     Active Substance: DOCETAXEL\DOCETAXEL ANHYDROUS
     Dosage: 400 MG (4 CYCLES)
     Route: 065
  5. EPIRUBICIN [Suspect]
     Active Substance: EPIRUBICIN
     Indication: Breast cancer female
     Dosage: 130 MG
     Route: 065
  6. EPIRUBICIN [Suspect]
     Active Substance: EPIRUBICIN
     Dosage: 150 MG (4 CYCLES)
     Route: 065
  7. AMOMUM VILLOSUM [Concomitant]
     Indication: Product used for unknown indication
     Dosage: 10 G
     Route: 065
  8. ASTRAGALUS PROPINQUUS ROOT\HERBALS [Concomitant]
     Active Substance: ASTRAGALUS PROPINQUUS ROOT\HERBALS
     Indication: Product used for unknown indication
     Dosage: 50 G
     Route: 065
  9. ATRACTYLODES MACROCEPHALA [Concomitant]
     Indication: Product used for unknown indication
     Dosage: 12 G
     Route: 065
  10. CEFOPERAZONE SODIUM\SULBACTAM [Concomitant]
     Active Substance: CEFOPERAZONE SODIUM\SULBACTAM
     Indication: Bacterial infection
     Dosage: 3 G, Q12H
     Route: 042
  11. CODONOPSIS PILOSULA ROOT\HERBALS [Concomitant]
     Active Substance: CODONOPSIS PILOSULA ROOT\HERBALS
     Indication: Product used for unknown indication
     Dosage: 30 G
     Route: 065
  12. DENDROBIUM NOBILE [Concomitant]
     Indication: Product used for unknown indication
     Dosage: 15 G
     Route: 065
  13. FRITILLARIA THUNBERGII [Concomitant]
     Indication: Product used for unknown indication
     Dosage: 10 G (AFTER MIXING WITH WATER)
     Route: 065
  14. ALBUMIN HUMAN [Concomitant]
     Active Substance: ALBUMIN HUMAN
     Indication: Coagulation factor increased
     Route: 065
  15. ALBUMIN HUMAN [Concomitant]
     Active Substance: ALBUMIN HUMAN
     Indication: Coagulation factor increased
     Route: 065
  16. ALBUMIN HUMAN [Concomitant]
     Active Substance: ALBUMIN HUMAN
     Indication: Blood osmolarity
  17. ALBUMIN HUMAN [Concomitant]
     Active Substance: ALBUMIN HUMAN
     Indication: Haemodynamic instability
  18. OPHIOPOGON JAPONICUS [Concomitant]
     Indication: Product used for unknown indication
     Dosage: 20 G
     Route: 065
  19. HUMAN PLASMA [Concomitant]
     Active Substance: HUMAN PLASMA
     Indication: Coagulation factor increased
     Route: 065
  20. HUMAN PLASMA [Concomitant]
     Active Substance: HUMAN PLASMA
     Indication: Coagulation factor increased
     Route: 065
  21. HUMAN PLASMA [Concomitant]
     Active Substance: HUMAN PLASMA
     Indication: Blood osmolarity
  22. HUMAN PLASMA [Concomitant]
     Active Substance: HUMAN PLASMA
     Indication: Haemodynamic instability
  23. HERBALS\SMILAX CHINA ROOT [Concomitant]
     Active Substance: HERBALS\SMILAX CHINA ROOT
     Indication: Product used for unknown indication
     Dosage: 20 G
     Route: 065
  24. GRANULOCYTE COLONY-STIMULATING FACTOR NOS [Concomitant]
     Active Substance: GRANULOCYTE COLONY-STIMULATING FACTOR NOS
     Indication: White blood cell count increased
     Dosage: 200 UG, QD
     Route: 030
  25. GRANULOCYTE COLONY-STIMULATING FACTOR NOS [Concomitant]
     Active Substance: GRANULOCYTE COLONY-STIMULATING FACTOR NOS
     Indication: Neutrophil count increased
  26. SODIUM CHLORIDE [Concomitant]
     Active Substance: SODIUM CHLORIDE
     Indication: Bacterial infection
     Dosage: 100 ML, Q12H
     Route: 042
  27. SODIUM CHLORIDE [Concomitant]
     Active Substance: SODIUM CHLORIDE
     Dosage: 250 ML, Q12H
     Route: 042
  28. Trichosanthin [Concomitant]
     Indication: Product used for unknown indication
     Dosage: 30 G
     Route: 065
  29. VANCOMYCIN [Concomitant]
     Active Substance: VANCOMYCIN
     Indication: Infection
     Dosage: 1.0 G, Q12H
     Route: 042

REACTIONS (1)
  - Neutropenic colitis [Unknown]
